FAERS Safety Report 5742950-X (Version None)
Quarter: 2008Q2

REPORT INFORMATION
  Report Type: 
  Country: None (occurrence: None)
  Receive Date: 20080515
  Receipt Date: 20080515
  Transmission Date: 20081010
  Serious: Yes (Death)
  Sender: FDA-Public Use
  Company Number: None

PATIENT
  Age: 73 Year
  Sex: Male
  Weight: 114.3065 kg

DRUGS (1)
  1. DIGOXIN [Suspect]
     Indication: ARRHYTHMIA
     Dosage: 1 TAB EVERY DAY PO
     Route: 048
     Dates: start: 20031226, end: 20080216

REACTIONS (2)
  - FATIGUE [None]
  - FEELING ABNORMAL [None]
